FAERS Safety Report 17597587 (Version 1)
Quarter: 2020Q1

REPORT INFORMATION
  Report Type: Spontaneous
  Country: US (occurrence: US)
  Receive Date: 20200330
  Receipt Date: 20200330
  Transmission Date: 20200409
  Serious: No
  Sender: FDA-Public Use
  Company Number: US-SA-2020SA077136

PATIENT
  Age: 70 Year
  Sex: Female

DRUGS (1)
  1. LANTUS [Suspect]
     Active Substance: INSULIN GLARGINE
     Indication: TYPE 2 DIABETES MELLITUS
     Dosage: 45 IU, HS
     Route: 065
     Dates: start: 1989

REACTIONS (4)
  - Blood glucose fluctuation [Unknown]
  - Malaise [Unknown]
  - Dizziness [Unknown]
  - Product dose omission [Unknown]
